FAERS Safety Report 10265611 (Version 1)
Quarter: 2014Q2

REPORT INFORMATION
  Report Type: Report from Study
  Country: US (occurrence: US)
  Receive Date: 20140627
  Receipt Date: 20140627
  Transmission Date: 20141212
  Serious: Yes (Death)
  Sender: FDA-Public Use
  Company Number: US-BAXTER-2014BAX033968

PATIENT
  Sex: 0

DRUGS (10)
  1. CYCLOPHOSPHAMIDE FOR INJECTION, USP [Suspect]
     Indication: LEUKAEMIA
     Dosage: ODD COURSES 1, 3, 5, AND 7
     Route: 065
  2. DOXORUBICIN [Suspect]
     Indication: LEUKAEMIA
     Route: 065
  3. VINCRISTINE [Suspect]
     Indication: LEUKAEMIA
     Route: 065
  4. DEXAMETHASONE [Suspect]
     Indication: LEUKAEMIA
     Route: 065
  5. CYTARABINE [Suspect]
     Indication: LEUKAEMIA
     Dosage: ALTERNATING EVEN COUSES 2, 4, 6, AND 8
     Route: 065
  6. CYTARABINE [Suspect]
     Indication: PROPHYLAXIS
     Dosage: ALTERNATELY ON DAYS 2 AND 7 OF EACH CYCLE FOR A TOTAL OF 6 TO 8 DOSES
     Route: 037
  7. METHOTREXATE [Suspect]
     Indication: LEUKAEMIA
     Dosage: ALTERNATING EVEN COUSES 2, 4, 6, AND 8
     Route: 065
  8. METHOTREXATE [Suspect]
     Indication: PROPHYLAXIS
     Dosage: ALTERNATELY ON DAYS 2 AND 7 OF EACH CYCLE FOR A TOTAL OF 6 TO 8 DOSES
     Route: 037
  9. DASATINIB [Suspect]
     Indication: LEUKAEMIA
     Dosage: DURING FIRST 14 DAYS OF THE FIRST CYCLE OF THERAPY
     Route: 048
  10. DASATINIB [Suspect]
     Dosage: CONTINUOUSLY FROM THE SECOND CYCLE ONWARDS
     Route: 048

REACTIONS (1)
  - Disease recurrence [Fatal]
